FAERS Safety Report 10837814 (Version 1)
Quarter: 2015Q1

REPORT INFORMATION
  Report Type: Spontaneous
  Country: US (occurrence: US)
  Receive Date: 20150219
  Receipt Date: 20150219
  Transmission Date: 20150721
  Serious: No
  Sender: FDA-Public Use
  Company Number: US-009507513-1501USA010840

PATIENT
  Age: 60 Year
  Sex: Male

DRUGS (7)
  1. PLAVIX [Concomitant]
     Active Substance: CLOPIDOGREL BISULFATE
  2. PEGINTRON [Suspect]
     Active Substance: PEGINTERFERON ALFA-2B
     Indication: HEPATITIS C
     Dosage: 94 MICROGRAM, ONCE PER WEEK
     Route: 058
     Dates: start: 20150109
  3. SOVALDI [Concomitant]
     Active Substance: SOFOSBUVIR
  4. ASPIRIN. [Concomitant]
     Active Substance: ASPIRIN
  5. IMDUR [Concomitant]
     Active Substance: ISOSORBIDE MONONITRATE
  6. NORVASC [Concomitant]
     Active Substance: AMLODIPINE BESYLATE
  7. RIBASPHERE [Suspect]
     Active Substance: RIBAVIRIN

REACTIONS (6)
  - Arthralgia [Unknown]
  - Rash generalised [Unknown]
  - Asthenia [Unknown]
  - Influenza like illness [Unknown]
  - Fatigue [Unknown]
  - Decreased appetite [Unknown]

NARRATIVE: CASE EVENT DATE: 201501
